FAERS Safety Report 14552444 (Version 1)
Quarter: 2018Q1

REPORT INFORMATION
  Report Type: Spontaneous
  Country: US (occurrence: US)
  Receive Date: 20180220
  Receipt Date: 20180220
  Transmission Date: 20180509
  Serious: Yes (Other)
  Sender: FDA-Public Use
  Company Number: US-TEVA-244216USA

PATIENT
  Age: 73 Year
  Sex: Female

DRUGS (4)
  1. GABAPENTIN TABLETS, 100 MG, 300 MG, 400 MG, 600MG 800 MG [Suspect]
     Active Substance: GABAPENTIN
     Indication: POST HERPETIC NEURALGIA
     Dosage: 600 MILLIGRAM DAILY;
  2. BROMOCRIPTINE [Concomitant]
     Active Substance: BROMOCRIPTINE
     Route: 065
  3. LISINOPRIL. [Concomitant]
     Active Substance: LISINOPRIL
     Route: 065
  4. LEVOTHYROXINE SODIUM. [Concomitant]
     Active Substance: LEVOTHYROXINE SODIUM
     Route: 065

REACTIONS (4)
  - Skin abrasion [None]
  - Somatic delusion [Recovered/Resolved]
  - Generalised erythema [None]
  - Rash pruritic [None]
